FAERS Safety Report 8554511-8 (Version None)
Quarter: 2012Q3

REPORT INFORMATION
  Report Type: 
  Country: None (occurrence: None)
  Receive Date: 20120726
  Receipt Date: 20120726
  Transmission Date: 20120928
  Serious: Yes (Other)
  Sender: FDA-Public Use
  Company Number: None

PATIENT
  Sex: Female
  Weight: 63 kg

DRUGS (1)
  1. CIPROFLOXACIN [Suspect]
     Dosage: 500 MG, PO
     Route: 048

REACTIONS (4)
  - EXFOLIATIVE RASH [None]
  - PLEURAL EFFUSION [None]
  - DRUG HYPERSENSITIVITY [None]
  - SKIN EXFOLIATION [None]
